FAERS Safety Report 8186932-X (Version None)
Quarter: 2012Q1

REPORT INFORMATION
  Report Type: 
  Country: None (occurrence: None)
  Receive Date: 20120213
  Receipt Date: 20111024
  Transmission Date: 20120608
  Serious: No
  Sender: FDA-Public Use
  Company Number: 1000024910

PATIENT
  Age: 71 Year
  Sex: Female

DRUGS (9)
  1. PRAVASTATIN [Concomitant]
  2. ESTRACE (ESTRADIOL) (ESTRADIOL) [Concomitant]
  3. NEXIUM [Concomitant]
  4. SAVELLA [Suspect]
     Indication: FIBROMYALGIA
     Dosage: 100 MG (50 MG, 2 IN 1), ORAL
     Route: 048
     Dates: start: 20110920, end: 20111015
  5. SAVELLA [Suspect]
     Indication: FIBROMYALGIA
     Dosage: 12.5 MG (12.5 MG, 1 IN 1 D), ORAL; 25 MG (12.5 MG, 1 IN 1 D), ORAL; 50 MG (25 MG, 2 IN 1 D), ORAL
     Route: 048
     Dates: start: 20110916, end: 20110919
  6. SAVELLA [Suspect]
     Indication: FIBROMYALGIA
     Dosage: 12.5 MG (12.5 MG, 1 IN 1 D), ORAL; 25 MG (12.5 MG, 1 IN 1 D), ORAL; 50 MG (25 MG, 2 IN 1 D), ORAL
     Route: 048
     Dates: start: 20110913, end: 20110913
  7. SAVELLA [Suspect]
     Indication: FIBROMYALGIA
     Dosage: 12.5 MG (12.5 MG, 1 IN 1 D), ORAL; 25 MG (12.5 MG, 1 IN 1 D), ORAL; 50 MG (25 MG, 2 IN 1 D), ORAL
     Route: 048
     Dates: start: 20110914, end: 20110915
  8. VAGIFEM (ESTRADIOL) (ESTRADIOL) [Concomitant]
  9. REMERON [Concomitant]

REACTIONS (5)
  - CHILLS [None]
  - ABDOMINAL PAIN UPPER [None]
  - SWEAT GLAND DISORDER [None]
  - ANXIETY [None]
  - VULVOVAGINAL PAIN [None]
